FAERS Safety Report 23148787 (Version 1)
Quarter: 2023Q4

REPORT INFORMATION
  Report Type: Spontaneous
  Country: US (occurrence: None)
  Receive Date: 20231103
  Receipt Date: 20231103
  Transmission Date: 20240110
  Serious: Yes (Other)
  Sender: FDA-Public Use
  Company Number: None

PATIENT
  Age: 80 Year
  Sex: Male

DRUGS (5)
  1. KERENDIA [Suspect]
     Active Substance: FINERENONE
     Dosage: FREQUENCY : DAILY;?
     Route: 048
     Dates: start: 20230925, end: 20231004
  2. ALLOPURINOL [Concomitant]
     Active Substance: ALLOPURINOL
  3. IRBESARTAN [Concomitant]
     Active Substance: IRBESARTAN
  4. ROSUVASTATIN [Concomitant]
     Active Substance: ROSUVASTATIN
  5. COLCHICINE [Concomitant]
     Active Substance: COLCHICINE

REACTIONS (3)
  - Nausea [None]
  - Abdominal discomfort [None]
  - Pancreatic enzymes increased [None]
